FAERS Safety Report 18024324 (Version 5)
Quarter: 2020Q4

REPORT INFORMATION
  Report Type: Report from Study
  Country: US (occurrence: US)
  Receive Date: 20200714
  Receipt Date: 20201114
  Transmission Date: 20210113
  Serious: No
  Sender: FDA-Public Use
  Company Number: NVSC2020US197506

PATIENT
  Sex: Female

DRUGS (2)
  1. COSENTYX [Suspect]
     Active Substance: SECUKINUMAB
     Route: 058
  2. COSENTYX [Suspect]
     Active Substance: SECUKINUMAB
     Indication: ANKYLOSING SPONDYLITIS
     Dosage: UNK
     Route: 065

REACTIONS (10)
  - Skin swelling [Unknown]
  - Local reaction [Unknown]
  - Swelling face [Unknown]
  - Cough [Unknown]
  - Pain [Unknown]
  - Arthropod bite [Unknown]
  - Asthma [Unknown]
  - Illness [Unknown]
  - Fatigue [Unknown]
  - Peripheral swelling [Unknown]
